FAERS Safety Report 7226773-0 (Version None)
Quarter: 2011Q1

REPORT INFORMATION
  Report Type: 
  Country: None (occurrence: None)
  Receive Date: 20110114
  Receipt Date: 20110113
  Transmission Date: 20110831
  Serious: Yes (Death, Hospitalization, Other)
  Sender: FDA-Public Use
  Company Number: CN-ABBOTT-10P-035-0692448-00

PATIENT
  Age: 22 Year
  Sex: Male
  Weight: 62 kg

DRUGS (4)
  1. HUMIRA [Suspect]
     Indication: ANKYLOSING SPONDYLITIS
     Route: 058
     Dates: start: 20101114, end: 20101212
  2. UNSPECIFIED MEDICATION [Concomitant]
     Indication: NASOPHARYNGITIS
  3. RIFAMPICIN [Concomitant]
     Indication: ANTIBIOTIC PROPHYLAXIS
     Dosage: 0.45G DAILY, 0.15G TID
     Route: 048
     Dates: start: 20101001
  4. UNSPECIFIED MEDICATION [Concomitant]
     Indication: COUGH

REACTIONS (10)
  - SEPTIC SHOCK [None]
  - BONE MARROW FAILURE [None]
  - INFECTION [None]
  - CANDIDIASIS [None]
  - PNEUMONIA [None]
  - NASOPHARYNGITIS [None]
  - CARDIAC FAILURE ACUTE [None]
  - ACUTE RESPIRATORY FAILURE [None]
  - MULTI-ORGAN FAILURE [None]
  - SEPSIS [None]
